FAERS Safety Report 8018653-8 (Version None)
Quarter: 2012Q1

REPORT INFORMATION
  Report Type: 
  Country: None (occurrence: None)
  Receive Date: 20120103
  Receipt Date: 20120103
  Transmission Date: 20120608
  Serious: Yes (Hospitalization, Other)
  Sender: FDA-Public Use
  Company Number: None

PATIENT
  Age: 57 Year
  Sex: Male
  Weight: 97.068 kg

DRUGS (1)
  1. PRIMATENE MIST [Suspect]
     Indication: ASTHMA
     Dosage: 0.22 MG
     Route: 055
     Dates: start: 20111119, end: 20111120

REACTIONS (6)
  - DYSPNOEA [None]
  - NO THERAPEUTIC RESPONSE [None]
  - ATRIAL FIBRILLATION [None]
  - TACHYCARDIA [None]
  - PNEUMONIA PRIMARY ATYPICAL [None]
  - ASTHMA [None]
